FAERS Safety Report 4407723-9 (Version None)
Quarter: 2004Q3

REPORT INFORMATION
  Report Type: 
  Country: None (occurrence: None)
  Receive Date: 20040721
  Receipt Date: 20040709
  Transmission Date: 20050211
  Serious: Yes (Death)
  Sender: FDA-Public Use
  Company Number: JP-JNJFOC-20040702093

PATIENT
  Age: 77 Year
  Sex: Male

DRUGS (6)
  1. LEVOFLOXACIN [Suspect]
     Indication: BRONCHITIS ACUTE
     Dosage: 500 MG, 1 IN 1 DAY, ORAL
     Route: 048
     Dates: start: 20040503, end: 20040512
  2. INSULIN (INSULIN) SOLUTION [Concomitant]
  3. LASIX [Concomitant]
  4. MONO-TILDIEM (DILTIAZEM HYDROCHLORIDE) TABLETS [Concomitant]
  5. THEOPHYLLINE [Concomitant]
  6. VENTOLIN [Concomitant]

REACTIONS (18)
  - ACUTE PULMONARY OEDEMA [None]
  - ACUTE RESPIRATORY FAILURE [None]
  - BLOOD PRESSURE INCREASED [None]
  - BRONCHOSPASM [None]
  - CARDIAC FAILURE [None]
  - CARDIOMYOPATHY [None]
  - CONDITION AGGRAVATED [None]
  - DISEASE RECURRENCE [None]
  - ENCEPHALOPATHY [None]
  - LUNG DISORDER [None]
  - MYOCARDIAL ISCHAEMIA [None]
  - NOSOCOMIAL INFECTION [None]
  - OBSTRUCTIVE CHRONIC BRONCHITIS WITH ACUTE EXACERBATION [None]
  - PITTING OEDEMA [None]
  - PNEUMONIA [None]
  - PULMONARY INTERSTITIAL EMPHYSEMA SYNDROME [None]
  - RENAL FAILURE ACUTE [None]
  - SEPTIC SHOCK [None]
